FAERS Safety Report 5985277-3 (Version None)
Quarter: 2008Q4

REPORT INFORMATION
  Report Type: 
  Country: None (occurrence: None)
  Receive Date: 20081203
  Receipt Date: 20081201
  Transmission Date: 20090506
  Serious: Yes (Other)
  Sender: FDA-Public Use
  Company Number: GXKR2008DE11349

PATIENT
  Sex: Male

DRUGS (1)
  1. LOPERAMIDE [Suspect]
     Indication: DIARRHOEA
     Dosage: ABOUT 5 TABLETS AT ONCE, ORAL
     Route: 048

REACTIONS (2)
  - CONVULSION [None]
  - HYPOGLYCAEMIA [None]
